FAERS Safety Report 6828032-4 (Version None)
Quarter: 2010Q3

REPORT INFORMATION
  Report Type: 
  Country: None (occurrence: None)
  Receive Date: 20100709
  Receipt Date: 20100705
  Transmission Date: 20110219
  Serious: Yes (Other)
  Sender: FDA-Public Use
  Company Number: A0869405A

PATIENT
  Sex: Female
  Weight: 66 kg

DRUGS (3)
  1. SERETIDE [Suspect]
     Indication: ASTHMA
     Dates: start: 20090701
  2. BUSONID [Concomitant]
     Indication: RHINITIS
     Dosage: 4SPR TWICE PER DAY
     Dates: start: 20090101
  3. LOSARTAN POTASSIUM AND HYDROCHLOROTHIAZIDE [Concomitant]
     Dosage: 3TAB PER DAY
     Dates: start: 20090101

REACTIONS (4)
  - APHONIA [None]
  - ASTHMATIC CRISIS [None]
  - OROPHARYNGEAL PAIN [None]
  - PRODUCT QUALITY ISSUE [None]
